FAERS Safety Report 22073605 (Version 1)
Quarter: 2023Q1

REPORT INFORMATION
  Report Type: Spontaneous
  Country: US (occurrence: US)
  Receive Date: 20230308
  Receipt Date: 20230308
  Transmission Date: 20230417
  Serious: Yes (Life-Threatening)
  Sender: FDA-Public Use
  Company Number: US-GE HEALTHCARE-2023CSU001316

PATIENT
  Age: 73 Year
  Sex: Male

DRUGS (5)
  1. GADOLINIUM [Suspect]
     Active Substance: GADOLINIUM
     Indication: Angiocardiogram
     Dosage: 3 POWER INJECTIONS OF 8 ML OF UNDILUTED GD
     Route: 013
  2. GADOLINIUM [Suspect]
     Active Substance: GADOLINIUM
     Indication: Catheterisation cardiac
  3. GADOLINIUM [Suspect]
     Active Substance: GADOLINIUM
     Indication: Acute myocardial infarction
  4. GADOLINIUM [Suspect]
     Active Substance: GADOLINIUM
     Indication: Angina unstable
  5. GADOLINIUM [Suspect]
     Active Substance: GADOLINIUM
     Indication: Cardiac failure congestive

REACTIONS (2)
  - Ventricular fibrillation [Recovered/Resolved]
  - Off label use [Recovered/Resolved]
